FAERS Safety Report 8803228 (Version 1)
Quarter: 2012Q4

REPORT INFORMATION
  Report Type: 
  Country: GB (occurrence: GB)
  Receive Date: 20120924
  Receipt Date: 20120924
  Transmission Date: 20130627
  Serious: Yes (Disabling)
  Sender: FDA-Public Use
  Company Number: GB-PFIZER INC-2012231937

PATIENT
  Age: 68 Year
  Sex: Male
  Weight: 80 kg

DRUGS (13)
  1. FLUCONAZOLE [Suspect]
     Indication: STOMATITIS
     Route: 048
     Dates: start: 20120723, end: 20120828
  2. AMITRIPTYLINE [Concomitant]
  3. AMLODIPINE [Concomitant]
  4. ATORVASTATIN [Concomitant]
  5. CANDESARTAN [Concomitant]
  6. CO-CODAMOL [Concomitant]
  7. DOXAZOSIN [Concomitant]
  8. LANSOPRAZOLE [Concomitant]
  9. SILDENAFIL [Concomitant]
  10. TEMAZEPAM [Concomitant]
  11. TRIMETHOPRIM [Concomitant]
     Indication: PROPHYLAXIS URINARY TRACT INFECTION
  12. CARBOPLATIN [Concomitant]
  13. PEMETREXED [Concomitant]

REACTIONS (5)
  - Muscular weakness [Recovered/Resolved]
  - Fall [Recovered/Resolved]
  - Fatigue [Unknown]
  - Dizziness [Unknown]
  - Depersonalisation [Unknown]
